FAERS Safety Report 24577277 (Version 1)
Quarter: 2024Q4

REPORT INFORMATION
  Report Type: Spontaneous
  Country: US (occurrence: US)
  Receive Date: 20241104
  Receipt Date: 20241104
  Transmission Date: 20250114
  Serious: No
  Sender: PERRIGO
  Company Number: US-PERRIGO-24US000541

PATIENT
  Age: 77 Year
  Sex: Male
  Weight: 68.027 kg

DRUGS (5)
  1. POLYETHYLENE GLYCOL 3350 [Suspect]
     Active Substance: POLYETHYLENE GLYCOL 3350
     Indication: Constipation
     Dosage: 17 G, QD
     Route: 048
     Dates: start: 20240104, end: 20240105
  2. LOSARTAN [Concomitant]
     Active Substance: LOSARTAN
     Indication: Hypertension
     Dosage: UNK
     Route: 065
     Dates: start: 2020
  3. FISH OIL [Concomitant]
     Active Substance: FISH OIL
     Indication: Rheumatoid arthritis
     Dosage: UNK
     Route: 065
     Dates: start: 2019
  4. VITAMIN D3 [Concomitant]
     Active Substance: CHOLECALCIFEROL
     Indication: Vitamin supplementation
     Dosage: UNK
     Route: 065
     Dates: start: 2019
  5. VITAMINS NOS [Concomitant]
     Active Substance: VITAMINS
     Indication: Supplementation therapy
     Route: 065

REACTIONS (5)
  - Abdominal pain upper [Not Recovered/Not Resolved]
  - Asthenia [Recovering/Resolving]
  - Balance disorder [Not Recovered/Not Resolved]
  - Diarrhoea [Not Recovered/Not Resolved]
  - Drug ineffective [Unknown]

NARRATIVE: CASE EVENT DATE: 20240104
